FAERS Safety Report 4382920-X (Version None)
Quarter: 2004Q2

REPORT INFORMATION
  Report Type: 
  Country: None (occurrence: None)
  Receive Date: 20040617
  Receipt Date: 20040609
  Transmission Date: 20050107
  Serious: Yes (Other)
  Sender: FDA-Public Use
  Company Number: 2004038709

PATIENT
  Age: 63 Year
  Sex: Female
  Weight: 81.6475 kg

DRUGS (6)
  1. NORVASC [Suspect]
     Indication: HYPERTENSION
     Dosage: 10 MG (10 MG, 1 IN 1D), ORAL
     Route: 048
     Dates: end: 20040101
  2. ATENOLOL [Concomitant]
  3. PROLASE (PROLASE) [Concomitant]
  4. ALLOPURINOL [Concomitant]
  5. LEVOTHYROXINE SODIUM [Concomitant]
  6. ALL OTHER THERAPEUTIC PRODUCTS [Suspect]
     Indication: MULTIPLE MYELOMA

REACTIONS (4)
  - COLITIS COLLAGENOUS [None]
  - GINGIVAL DISORDER [None]
  - MULTIPLE MYELOMA [None]
  - RENAL FAILURE [None]
